FAERS Safety Report 8583734-7 (Version None)
Quarter: 2012Q3

REPORT INFORMATION
  Report Type: 
  Country: None (occurrence: None)
  Receive Date: 20120810
  Receipt Date: 20120718
  Transmission Date: 20120928
  Serious: Yes (Other)
  Sender: FDA-Public Use
  Company Number: JP-009507513-1207JPN008006

PATIENT

DRUGS (4)
  1. REBETOL [Suspect]
     Indication: HEPATITIS C
     Route: 048
     Dates: start: 20120509
  2. TELAVIC [Suspect]
     Indication: HEPATITIS C
     Route: 048
     Dates: start: 20120509
  3. PEG-INTRON [Suspect]
     Indication: HEPATITIS C
     Dosage: 1.5G/KG/WEEK
     Route: 058
     Dates: start: 20120509
  4. URSO 250 [Concomitant]
     Indication: HEPATITIS C
     Route: 048

REACTIONS (3)
  - RENAL IMPAIRMENT [None]
  - HYPERURICAEMIA [None]
  - RASH [None]
